FAERS Safety Report 9023713 (Version 1)
Quarter: 2013Q1

REPORT INFORMATION
  Report Type: Spontaneous
  Country: US (occurrence: US)
  Receive Date: 20130121
  Receipt Date: 20130121
  Transmission Date: 20140127
  Serious: Yes (Hospitalization)
  Sender: FDA-Public Use
  Company Number: US-ELI_LILLY_AND_COMPANY-US201301004306

PATIENT
  Age: 56 None
  Sex: Female

DRUGS (9)
  1. ADCIRCA [Suspect]
     Indication: COR PULMONALE CHRONIC
     Dosage: 20 MG, BID
  2. FUROSEMIDE [Concomitant]
  3. CAPTOPRIL [Concomitant]
  4. HYDROXYCHLOROQUINE [Concomitant]
  5. COLCRYS [Concomitant]
  6. AMLODIPINE [Concomitant]
  7. ULORIC [Concomitant]
  8. CALCIUM [Concomitant]
  9. NEXIUM [Concomitant]

REACTIONS (1)
  - Cardiac failure [Recovering/Resolving]
